FAERS Safety Report 23513161 (Version 1)
Quarter: 2024Q1

REPORT INFORMATION
  Report Type: Spontaneous
  Country: US (occurrence: US)
  Receive Date: 20240212
  Receipt Date: 20240212
  Transmission Date: 20240410
  Serious: Yes (Other)
  Sender: FDA-Public Use
  Company Number: US-BAYER-2024A022813

PATIENT
  Age: 41 Year
  Sex: Male

DRUGS (1)
  1. CIPRO [Suspect]
     Active Substance: CIPROFLOXACIN HYDROCHLORIDE
     Indication: Prostatitis
     Dosage: UNK, BID
     Route: 048
     Dates: start: 20231006, end: 20231019

REACTIONS (5)
  - Neuropathy peripheral [Not Recovered/Not Resolved]
  - Tendonitis [Not Recovered/Not Resolved]
  - Brain fog [Not Recovered/Not Resolved]
  - Vision blurred [Not Recovered/Not Resolved]
  - Tinnitus [Not Recovered/Not Resolved]

NARRATIVE: CASE EVENT DATE: 20240101
